FAERS Safety Report 14323035 (Version 1)
Quarter: 2017Q4

REPORT INFORMATION
  Report Type: Spontaneous
  Country: HU (occurrence: HU)
  Receive Date: 20171226
  Receipt Date: 20171226
  Transmission Date: 20180321
  Serious: Yes (Life-Threatening, Hospitalization)
  Sender: FDA-Public Use
  Company Number: HU-CONCORDIA PHARMACEUTICALS INC.-E2B_00009037

PATIENT
  Age: 19 Month
  Sex: Female
  Weight: 11 kg

DRUGS (6)
  1. VIGANTOL [Concomitant]
     Active Substance: CHOLECALCIFEROL
     Route: 048
  2. ENALAPRIL HEXAL [Concomitant]
     Active Substance: ENALAPRIL
     Route: 048
  3. VEROSPIRON [Concomitant]
     Active Substance: SPIRONOLACTONE
     Route: 048
  4. MALTOFER [Concomitant]
     Active Substance: IRON POLYMALTOSE
     Route: 048
  5. DIGOXIN. [Suspect]
     Active Substance: DIGOXIN
     Route: 048
     Dates: start: 20171120, end: 20171123
  6. TALLITON [Suspect]
     Active Substance: CARVEDILOL
     Route: 048
     Dates: start: 20171120, end: 20171123

REACTIONS (9)
  - Consciousness fluctuating [Recovered/Resolved]
  - Overdose [Unknown]
  - Toxicity to various agents [None]
  - Blood pressure diastolic decreased [None]
  - Somnolence [Recovered/Resolved]
  - Hypoglycaemia [Recovered/Resolved]
  - Incorrect dose administered [None]
  - Bradycardia [Recovered/Resolved]
  - Drug prescribing error [Unknown]

NARRATIVE: CASE EVENT DATE: 20171123
